FAERS Safety Report 8234171-6 (Version None)
Quarter: 2012Q1

REPORT INFORMATION
  Report Type: 
  Country: None (occurrence: None)
  Receive Date: 20120326
  Receipt Date: 20120314
  Transmission Date: 20120608
  Serious: Yes (Other)
  Sender: FDA-Public Use
  Company Number: US-BRISTOL-MYERS SQUIBB COMPANY-16453805

PATIENT
  Age: 47 Year
  Sex: Male
  Weight: 113 kg

DRUGS (15)
  1. DIPHENHYDRAMINE HCL [Suspect]
     Route: 042
  2. GRANISETRON [Suspect]
     Route: 042
  3. LOPERAMIDE [Suspect]
  4. WARFARIN SODIUM [Interacting]
  5. ERLOTINIB HYDROCHLORIDE [Interacting]
     Indication: LUNG NEOPLASM MALIGNANT
     Route: 048
  6. CARBOPLATIN [Suspect]
     Route: 042
  7. CIMETIDINE [Suspect]
     Route: 042
  8. CITALOPRAM HYDROBROMIDE [Suspect]
  9. DEXAMETHASONE [Suspect]
     Route: 042
  10. OXYCODONE HCL [Suspect]
     Indication: PAIN
  11. DARBEPOETIN ALFA [Suspect]
     Route: 058
  12. PACLITAXEL [Suspect]
     Route: 042
  13. BEVACIZUMAB [Suspect]
  14. VITAMIN K TAB [Suspect]
  15. ALPRAZOLAM [Suspect]

REACTIONS (5)
  - DRUG INTERACTION [None]
  - INTERNATIONAL NORMALISED RATIO INCREASED [None]
  - DIARRHOEA [None]
  - HAEMATOMA [None]
  - RASH [None]
